FAERS Safety Report 8202188-3 (Version None)
Quarter: 2012Q1

REPORT INFORMATION
  Report Type: 
  Country: None (occurrence: None)
  Receive Date: 20120312
  Receipt Date: 20120305
  Transmission Date: 20120608
  Serious: Yes (Hospitalization)
  Sender: FDA-Public Use
  Company Number: US-BAYER-2012-022589

PATIENT
  Age: 24 Year
  Sex: Female

DRUGS (6)
  1. TRAZODONE HCL [Concomitant]
     Route: 048
  2. PREVACID [Concomitant]
     Route: 048
  3. PHENERGAN [Concomitant]
     Route: 048
  4. ADIPEX [Concomitant]
     Dosage: 37.5 MG, DAILY
     Route: 048
  5. YASMIN [Suspect]
  6. EFFEXOR [Concomitant]
     Route: 048

REACTIONS (1)
  - PULMONARY EMBOLISM [None]
